FAERS Safety Report 19748129 (Version 1)
Quarter: 2021Q3

REPORT INFORMATION
  Report Type: Spontaneous
  Country: JP (occurrence: JP)
  Receive Date: 20210825
  Receipt Date: 20210825
  Transmission Date: 20211014
  Serious: Yes (Death, Other)
  Sender: FDA-Public Use
  Company Number: JP-SAKK-2020SA292642AA

PATIENT
  Age: 80 Year
  Sex: Male

DRUGS (13)
  1. MAGNESIUM OXIDE. [Concomitant]
     Active Substance: MAGNESIUM OXIDE
     Indication: PRODUCT USED FOR UNKNOWN INDICATION
     Dosage: 330 (UNIT, UNSPECIFIED), TID
     Route: 048
     Dates: start: 20190920
  2. BACTRAMIN [Concomitant]
     Active Substance: SULFAMETHOXAZOLE\TRIMETHOPRIM
     Indication: PRODUCT USED FOR UNKNOWN INDICATION
     Dosage: 7 T, QD
     Route: 048
  3. MAINTATE [Concomitant]
     Active Substance: BISOPROLOL FUMARATE
     Indication: PRODUCT USED FOR UNKNOWN INDICATION
     Dosage: 0.625 (UNIT, UNSPECIFIED), QD
     Route: 048
  4. ADOAIR [Concomitant]
     Active Substance: FLUTICASONE PROPIONATE\SALMETEROL XINAFOATE
     Indication: PRODUCT USED FOR UNKNOWN INDICATION
     Dosage: 250 (UNIT, UNSPECIFIED), QD
     Route: 055
  5. NITRODERM [Concomitant]
     Active Substance: NITROGLYCERIN
     Indication: PRODUCT USED FOR UNKNOWN INDICATION
     Dosage: 25 (UNIT, UNSPECIFIED), QD
     Route: 062
  6. ALENDRONATE [Concomitant]
     Active Substance: ALENDRONATE SODIUM
     Indication: PRODUCT USED FOR UNKNOWN INDICATION
     Dosage: 35 (UNIT, UNSPECIFIED), QW
     Route: 048
     Dates: start: 20191127
  7. KEVZARA [Suspect]
     Active Substance: SARILUMAB
     Indication: POLYMYALGIA RHEUMATICA
     Dosage: 200 MG, QOW
     Route: 058
     Dates: start: 20200918
  8. PREDONINE [Concomitant]
     Active Substance: PREDNISOLONE
     Indication: POLYMYALGIA RHEUMATICA
     Dosage: 5 MG, BID
     Route: 048
     Dates: start: 20190910
  9. TELMISARTAN. [Concomitant]
     Active Substance: TELMISARTAN
     Indication: PRODUCT USED FOR UNKNOWN INDICATION
     Dosage: 20 (UNIT, UNSPECIFIED), QD
     Route: 048
  10. ZYLORIC [Concomitant]
     Active Substance: ALLOPURINOL
     Indication: PRODUCT USED FOR UNKNOWN INDICATION
     Dosage: 100 (UNIT, UNSPECIFIED), QD
     Route: 048
  11. CELECOX [Concomitant]
     Active Substance: CELECOXIB
     Indication: PRODUCT USED FOR UNKNOWN INDICATION
     Dosage: 100 (UNIT, UNSPECIFIED), PRN
     Route: 048
  12. MYSLEE [Concomitant]
     Active Substance: ZOLPIDEM TARTRATE
     Indication: PRODUCT USED FOR UNKNOWN INDICATION
     Dosage: 5 (UNIT, UNSPECIFIED), QD
     Route: 048
     Dates: start: 20200911
  13. AMLODIPINE [AMLODIPINE BESILATE] [Concomitant]
     Active Substance: AMLODIPINE BESYLATE
     Indication: PRODUCT USED FOR UNKNOWN INDICATION
     Dosage: 5 (UNIT, UNSPECIFIED), QD
     Route: 048

REACTIONS (8)
  - Respiratory arrest [Fatal]
  - Dysstasia [Unknown]
  - Cardiac arrest [Fatal]
  - Dyspnoea [Fatal]
  - Off label use [Unknown]
  - Pulse absent [Fatal]
  - Gait inability [Unknown]
  - Fall [Unknown]

NARRATIVE: CASE EVENT DATE: 20200918
